FAERS Safety Report 6233744-X (Version None)
Quarter: 2009Q2

REPORT INFORMATION
  Report Type: 
  Country: None (occurrence: None)
  Receive Date: 20090618
  Receipt Date: 20071226
  Transmission Date: 20091009
  Serious: Yes (Hospitalization, Other)
  Sender: FDA-Public Use
  Company Number: US-ASTRAZENECA-2006UW25234

PATIENT
  Age: 417 Month
  Sex: Male
  Weight: 94.3 kg

DRUGS (34)
  1. SEROQUEL [Suspect]
     Indication: SCHIZOPHRENIA
     Dosage: 25 MG - 100 MG
     Route: 048
     Dates: start: 20040415
  2. SEROQUEL [Suspect]
     Indication: BIPOLAR DISORDER
     Dosage: 25 MG - 100 MG
     Route: 048
     Dates: start: 20040415
  3. SEROQUEL [Suspect]
     Indication: DEPRESSION
     Dosage: 25 MG - 100 MG
     Route: 048
     Dates: start: 20040415
  4. SEROQUEL [Suspect]
     Route: 048
     Dates: start: 20040503
  5. SEROQUEL [Suspect]
     Route: 048
     Dates: start: 20040503
  6. SEROQUEL [Suspect]
     Route: 048
     Dates: start: 20040503
  7. SEROQUEL [Suspect]
     Route: 048
     Dates: start: 20060109
  8. SEROQUEL [Suspect]
     Route: 048
     Dates: start: 20060109
  9. SEROQUEL [Suspect]
     Route: 048
     Dates: start: 20060109
  10. SEROQUEL [Suspect]
     Route: 048
  11. SEROQUEL [Suspect]
     Route: 048
  12. SEROQUEL [Suspect]
     Route: 048
  13. ABILIFY [Concomitant]
     Dates: start: 20030101
  14. GEODON [Concomitant]
     Route: 048
     Dates: start: 20040101
  15. RISPERDAL [Concomitant]
     Route: 048
     Dates: start: 20050101
  16. ZYPREXA [Concomitant]
     Route: 048
     Dates: start: 20030101
  17. LEXAPRO [Concomitant]
     Route: 048
     Dates: start: 20050101
  18. LOTENSIN [Concomitant]
     Dosage: 5 MG - 20 MG
     Route: 048
     Dates: start: 20040518
  19. LIPITOR [Concomitant]
     Route: 048
     Dates: start: 20040405
  20. LASIX [Concomitant]
     Route: 048
     Dates: start: 20000823
  21. CELEBREX [Concomitant]
     Dates: start: 20040510
  22. ASPIRIN [Concomitant]
     Dates: start: 20050613
  23. IMIPRAMINE [Concomitant]
     Dates: start: 20050613
  24. NEXIUM [Concomitant]
     Dates: start: 20040503
  25. POTASSIUM CHLORIDE [Concomitant]
     Dates: start: 20050613
  26. IMDUR [Concomitant]
     Dates: start: 20000823
  27. ELMIRON [Concomitant]
     Dates: start: 20050511
  28. TOPROL-XL [Concomitant]
     Dates: start: 20061129
  29. AMBIEN [Concomitant]
     Dates: start: 20061129
  30. AVODART [Concomitant]
     Dates: start: 20061126
  31. AVANDIA [Concomitant]
     Dates: start: 20061126
  32. REMERON [Concomitant]
     Dates: start: 20060109
  33. NAPROSYN [Concomitant]
     Dates: start: 20040423
  34. CYMBALTA [Concomitant]
     Dates: start: 20071204

REACTIONS (5)
  - CHOLELITHIASIS [None]
  - DIABETES MELLITUS [None]
  - PANCREATITIS [None]
  - PANCREATITIS ACUTE [None]
  - TYPE 2 DIABETES MELLITUS [None]
